FAERS Safety Report 10576063 (Version 1)
Quarter: 2014Q4

REPORT INFORMATION
  Report Type: Spontaneous
  Country: US (occurrence: None)
  Receive Date: 20141110
  Receipt Date: 20141110
  Transmission Date: 20150529
  Serious: No
  Sender: FDA-Public Use
  Company Number: None

PATIENT
  Age: 27 Year
  Sex: Female
  Weight: 74.84 kg

DRUGS (1)
  1. GABAPENTIN 100MG [Suspect]
     Active Substance: GABAPENTIN

REACTIONS (1)
  - Alcohol interaction [None]

NARRATIVE: CASE EVENT DATE: 20141106
